FAERS Safety Report 5917378-X (Version None)
Quarter: 2008Q4

REPORT INFORMATION
  Report Type: 
  Country: None (occurrence: None)
  Receive Date: 20081014
  Receipt Date: 20081007
  Transmission Date: 20090506
  Serious: Yes (Death)
  Sender: FDA-Public Use
  Company Number: A0746237A

PATIENT

DRUGS (4)
  1. LAMOTRIGINE [Suspect]
     Indication: BIPOLAR DISORDER
     Dosage: 400MG PER DAY
  2. UNKNOWN MEDICATION [Suspect]
     Indication: DRUG USE FOR UNKNOWN INDICATION
  3. QUETIAPINE FUMARATE [Concomitant]
     Dosage: 300MG PER DAY
  4. GEODON [Concomitant]
     Dosage: 160MG PER DAY

REACTIONS (6)
  - DEATH NEONATAL [None]
  - DRUG EXPOSURE DURING PREGNANCY [None]
  - HYPOTONIA [None]
  - NEONATAL DISORDER [None]
  - NEONATAL RESPIRATORY FAILURE [None]
  - OXYGEN SATURATION DECREASED [None]
